FAERS Safety Report 5327928-2 (Version None)
Quarter: 2007Q2

REPORT INFORMATION
  Report Type: 
  Country: None (occurrence: None)
  Receive Date: 20070517
  Receipt Date: 20070515
  Transmission Date: 20071010
  Serious: Yes (Life-Threatening)
  Sender: FDA-Public Use
  Company Number: AU-BOEHRINGER INGELHEIM PHARMACEUTICALS, INC.-2007-BP-05882AU

PATIENT
  Sex: Female
  Weight: 52 kg

DRUGS (6)
  1. ASASANTIN SR [Suspect]
     Indication: TRANSIENT ISCHAEMIC ATTACK
     Dosage: 400/200MG/MG
     Route: 048
     Dates: start: 20070306, end: 20070408
  2. ACTONEL COMBI [Concomitant]
     Indication: OSTEOPOROSIS
     Route: 048
  3. CALCITRIOL [Concomitant]
     Indication: OSTEOPOROSIS
     Route: 048
  4. NEXIUM [Concomitant]
     Indication: DYSPEPSIA
     Route: 048
  5. PREDNISOLONE [Concomitant]
     Indication: POLYMYALGIA RHEUMATICA
     Route: 048
  6. SEREPAX [Concomitant]
     Indication: INSOMNIA
     Route: 048

REACTIONS (1)
  - GASTROINTESTINAL HAEMORRHAGE [None]
